FAERS Safety Report 4981085-0 (Version None)
Quarter: 2006Q2

REPORT INFORMATION
  Report Type: 
  Country: None (occurrence: None)
  Receive Date: 20060418
  Receipt Date: 20060328
  Transmission Date: 20061013
  Serious: Yes (Disabling)
  Sender: FDA-Public Use
  Company Number: US200603005540

PATIENT
  Age: 84 Year
  Sex: Female

DRUGS (5)
  1. FORTEO [Suspect]
     Indication: OSTEOPOROSIS
     Dosage: 20 UG, DAILY (1/D)
     Dates: start: 20021211
  2. FORTEO [Concomitant]
  3. HYZAAR [Concomitant]
  4. AMLODIPINE BESYLATE [Concomitant]
  5. WARFARIN SODIUM [Concomitant]

REACTIONS (5)
  - ADVERSE EVENT [None]
  - HIP FRACTURE [None]
  - PHARMACEUTICAL PRODUCT COMPLAINT [None]
  - ROTATOR CUFF SYNDROME [None]
  - URINARY TRACT DISORDER [None]
